FAERS Safety Report 10830680 (Version 1)
Quarter: 2015Q1

REPORT INFORMATION
  Report Type: Spontaneous
  Country: US (occurrence: US)
  Receive Date: 20150219
  Receipt Date: 20150219
  Transmission Date: 20150721
  Serious: Yes (Hospitalization)
  Sender: FDA-Public Use
  Company Number: US-BAUSCH-BL-2015-002825

PATIENT
  Age: 55 Year
  Sex: Male

DRUGS (1)
  1. METRONIDAZOLE. [Suspect]
     Active Substance: METRONIDAZOLE
     Indication: LIVER ABSCESS
     Route: 048

REACTIONS (15)
  - Dizziness [Recovered/Resolved]
  - Toxic encephalopathy [Recovering/Resolving]
  - Dysphagia [Recovered/Resolved]
  - Abasia [Recovered/Resolved]
  - Dysarthria [Recovered/Resolved]
  - Grip strength decreased [Recovered/Resolved]
  - Vertigo [Recovered/Resolved]
  - Trismus [Recovered/Resolved]
  - Cerebellar syndrome [Recovered/Resolved]
  - Ataxia [Recovered/Resolved]
  - Nausea [Recovered/Resolved]
  - Vomiting [Recovered/Resolved]
  - Headache [Recovered/Resolved]
  - Asthenia [Unknown]
  - Areflexia [Recovered/Resolved]
